FAERS Safety Report 20821792 (Version 1)
Quarter: 2022Q2

REPORT INFORMATION
  Report Type: Spontaneous
  Country: SE (occurrence: SE)
  Receive Date: 20220512
  Receipt Date: 20220512
  Transmission Date: 20220721
  Serious: Yes (Death, Other)
  Sender: FDA-Public Use
  Company Number: SE-PFM-2022-04354

PATIENT
  Sex: Male

DRUGS (3)
  1. BRAFTOVI [Suspect]
     Active Substance: ENCORAFENIB
     Indication: Malignant melanoma
     Dosage: UNK
     Route: 048
  2. MEKTOVI [Suspect]
     Active Substance: BINIMETINIB
     Indication: Malignant melanoma
     Dosage: UNK
     Route: 048
  3. BETAPRED [Concomitant]
     Active Substance: BETAMETHASONE SODIUM PHOSPHATE
     Dosage: UNK
     Route: 065

REACTIONS (7)
  - Neoplasm progression [Fatal]
  - Pulmonary embolism [Fatal]
  - Condition aggravated [Fatal]
  - Dyspnoea [Fatal]
  - Weight increased [Unknown]
  - Confusional state [Unknown]
  - Balance disorder [Unknown]
